FAERS Safety Report 8563865-8 (Version None)
Quarter: 2012Q3

REPORT INFORMATION
  Report Type: 
  Country: None (occurrence: None)
  Receive Date: 20120718
  Receipt Date: 20120705
  Transmission Date: 20120928
  Serious: Yes (Hospitalization)
  Sender: FDA-Public Use
  Company Number: AEUSA201200351

PATIENT
  Age: 53 Year
  Sex: Female
  Weight: 63.5036 kg

DRUGS (1)
  1. PROLASTIN-C [Suspect]
     Indication: ALPHA-1 ANTI-TRYPSIN DEFICIENCY
     Dosage: ;QW;IV
     Route: 042
     Dates: start: 20120101

REACTIONS (5)
  - PYREXIA [None]
  - MALAISE [None]
  - OESOPHAGEAL OBSTRUCTION [None]
  - STEVENS-JOHNSON SYNDROME [None]
  - SEPSIS [None]
